FAERS Safety Report 13454959 (Version 3)
Quarter: 2017Q3

REPORT INFORMATION
  Report Type: Report from Study
  Country: FR (occurrence: FR)
  Receive Date: 20170418
  Receipt Date: 20170803
  Transmission Date: 20171127
  Serious: Yes (Hospitalization)
  Sender: FDA-Public Use
  Company Number: FR-PFIZER INC-2017165803

PATIENT
  Age: 28 Year
  Sex: Female
  Weight: 58 kg

DRUGS (3)
  1. MIFEGYNE [Suspect]
     Active Substance: MIFEPRISTONE
     Indication: ABORTION INDUCED
     Dosage: 600 MG, SINGLE [TOTAL]
     Route: 048
     Dates: start: 19930308, end: 19930308
  2. MISOPROSTOL. [Suspect]
     Active Substance: MISOPROSTOL
     Indication: ABORTION INDUCED
     Dosage: 400 ?G + 200 ?G [600 ?G TOTAL]
     Route: 048
     Dates: start: 19930310, end: 19930310
  3. ETHINYLESTRADIOL W/LYNESTRENOL [Concomitant]
     Active Substance: ETHINYL ESTRADIOL\LYNESTRENOL
     Indication: CONTRACEPTION
     Dosage: 1 DF, DAILY
     Route: 048
     Dates: start: 19930311

REACTIONS (1)
  - Endometritis [Unknown]

NARRATIVE: CASE EVENT DATE: 19930314
